FAERS Safety Report 11480455 (Version 2)
Quarter: 2019Q3

REPORT INFORMATION
  Report Type: Spontaneous
  Country: CA (occurrence: CA)
  Receive Date: 20150909
  Receipt Date: 20190710
  Transmission Date: 20191004
  Serious: Yes (Other)
  Sender: FDA-Public Use
  Company Number: CA-JNJFOC-20150902771

PATIENT

DRUGS (2)
  1. ZYTIGA [Suspect]
     Active Substance: ABIRATERONE ACETATE
     Indication: PROSTATE CANCER METASTATIC
     Route: 048
  2. PREDNISONE. [Suspect]
     Active Substance: PREDNISONE
     Indication: PROSTATE CANCER METASTATIC
     Route: 065

REACTIONS (15)
  - Diarrhoea [Unknown]
  - Vomiting [Unknown]
  - Alanine aminotransferase increased [Unknown]
  - Prostatic specific antigen increased [Unknown]
  - Hypomagnesaemia [Unknown]
  - Aspartate aminotransferase increased [Unknown]
  - Hypocalcaemia [Unknown]
  - Platelet disorder [Unknown]
  - Fatigue [Unknown]
  - Lymphocyte count abnormal [Unknown]
  - Decreased appetite [Unknown]
  - Blood lactate dehydrogenase increased [Unknown]
  - Anaemia [Unknown]
  - Nausea [Unknown]
  - Blood alkaline phosphatase increased [Unknown]
